FAERS Safety Report 7348505-8 (Version None)
Quarter: 2011Q1

REPORT INFORMATION
  Report Type: 
  Country: None (occurrence: None)
  Receive Date: 20110314
  Receipt Date: 20110302
  Transmission Date: 20110831
  Serious: Yes (Other)
  Sender: FDA-Public Use
  Company Number: BR-AMGEN-BRASP2011008420

PATIENT
  Age: 50 Year
  Sex: Female
  Weight: 64 kg

DRUGS (2)
  1. ENBREL [Suspect]
     Indication: RHEUMATOID ARTHRITIS
     Dosage: 50 MG, WEEKLY
     Route: 058
     Dates: start: 20100901, end: 20110201
  2. ALENDRONATE SODIUM [Concomitant]
     Indication: OSTEOPENIA
     Dosage: 70 MG, UNK

REACTIONS (8)
  - TENDONITIS [None]
  - NASOPHARYNGITIS [None]
  - IMMUNODEFICIENCY [None]
  - DRY MOUTH [None]
  - NASAL CONGESTION [None]
  - APTYALISM [None]
  - PRODUCTIVE COUGH [None]
  - HAEMATOMA [None]
